FAERS Safety Report 10790376 (Version 1)
Quarter: 2015Q1

REPORT INFORMATION
  Report Type: Spontaneous
  Country: US (occurrence: US)
  Receive Date: 20150212
  Receipt Date: 20150212
  Transmission Date: 20150721
  Serious: Yes (Hospitalization)
  Sender: FDA-Public Use
  Company Number: US-PERRIGO-15US001319

PATIENT
  Age: 5 Year
  Sex: Female
  Weight: 16.33 kg

DRUGS (2)
  1. DIPHENHYDRAMINE HYDROCHLORIDE 2.5 MG/ML CHERRY 379 [Suspect]
     Active Substance: DIPHENHYDRAMINE HYDROCHLORIDE
     Indication: ACCIDENTAL EXPOSURE TO PRODUCT BY CHILD
     Dosage: 12.5 MG, TWICE
     Route: 048
     Dates: start: 201411, end: 201412
  2. DIPHENHYDRAMINE HYDROCHLORIDE 2.5 MG/ML CHERRY 379 [Suspect]
     Active Substance: DIPHENHYDRAMINE HYDROCHLORIDE
     Indication: PRURITUS
     Dosage: APPROXIMATELY 275 MG, SINGLE
     Route: 048
     Dates: start: 20141211, end: 20141211

REACTIONS (6)
  - Off label use [Recovered/Resolved]
  - Lethargy [Recovered/Resolved]
  - Irritability [Recovered/Resolved]
  - Accidental overdose [Recovered/Resolved]
  - Hallucination [Recovered/Resolved]
  - Gait disturbance [Recovered/Resolved]

NARRATIVE: CASE EVENT DATE: 201411
